FAERS Safety Report 8579209-1 (Version None)
Quarter: 2012Q3

REPORT INFORMATION
  Report Type: 
  Country: None (occurrence: None)
  Receive Date: 20120808
  Receipt Date: 20120726
  Transmission Date: 20120928
  Serious: Yes (Hospitalization)
  Sender: FDA-Public Use
  Company Number: BR-ROCHE-1093701

PATIENT
  Sex: Male
  Weight: 89 kg

DRUGS (4)
  1. INTERFERON ALFA [Suspect]
     Indication: HEPATITIS C
  2. RIBAVIRIN [Suspect]
     Indication: HEPATITIS C
  3. PEGASYS [Suspect]
     Indication: HEPATITIS C
     Route: 051
  4. PRATIPRAZOL [Concomitant]
     Route: 048

REACTIONS (8)
  - HEADACHE [None]
  - WEIGHT DECREASED [None]
  - TOOTH LOSS [None]
  - ABDOMINAL DISCOMFORT [None]
  - APPENDIX DISORDER [None]
  - DIZZINESS [None]
  - PYREXIA [None]
  - DECREASED APPETITE [None]
